FAERS Safety Report 7373752-9 (Version None)
Quarter: 2011Q1

REPORT INFORMATION
  Report Type: 
  Country: None (occurrence: None)
  Receive Date: 20110315
  Receipt Date: 20110301
  Transmission Date: 20110831
  Serious: Yes (Hospitalization)
  Sender: FDA-Public Use
  Company Number: 2010SP055557

PATIENT
  Age: 67 Year
  Sex: Female
  Weight: 64 kg

DRUGS (5)
  1. DOMPRIDONE [Concomitant]
  2. SENNA ALEXANDRINA [Concomitant]
  3. TEMOZOLOMIDE [Suspect]
     Indication: OVARIAN CANCER
     Dosage: 345 MG;QD;PO
     Route: 048
     Dates: start: 20100812
  4. LACTULOSE [Concomitant]
  5. ABT-888 (INVESTIGATIONAL DRUG) [Suspect]
     Indication: OVARIAN CANCER
     Dosage: 400 MG;BID;PO
     Route: 048
     Dates: start: 20100812

REACTIONS (5)
  - ASCITES [None]
  - PERIPHERAL SENSORY NEUROPATHY [None]
  - BONE MARROW FAILURE [None]
  - FEBRILE NEUTROPENIA [None]
  - JOINT CONTRACTURE [None]
